FAERS Safety Report 19256483 (Version 1)
Quarter: 2021Q2

REPORT INFORMATION
  Report Type: Spontaneous
  Country: US (occurrence: US)
  Receive Date: 20210513
  Receipt Date: 20210513
  Transmission Date: 20210717
  Serious: Yes (Other)
  Sender: FDA-Public Use
  Company Number: US-AMERICAN REGENT INC-2021001210

PATIENT
  Age: 7 Decade
  Sex: Female

DRUGS (3)
  1. INJECTAFER [Suspect]
     Active Substance: FERRIC CARBOXYMALTOSE
     Indication: BLOOD IRON DECREASED
     Dosage: UNK, FIRST DOSE (FIRST COURSE OF TREATMENT)
     Route: 042
     Dates: start: 2021, end: 2021
  2. INJECTAFER [Suspect]
     Active Substance: FERRIC CARBOXYMALTOSE
     Dosage: UNK, SECOND DOSE (FIRST COURSE OF TREATMENT)
     Route: 042
     Dates: start: 2021, end: 2021
  3. INJECTAFER [Suspect]
     Active Substance: FERRIC CARBOXYMALTOSE
     Dosage: UNK, FIRST DOSE (SECOND COURSE OF TREATMENT)
     Route: 042
     Dates: start: 202104, end: 202104

REACTIONS (3)
  - Blood phosphorus decreased [Recovered/Resolved]
  - Drug ineffective [Not Recovered/Not Resolved]
  - Blood iron decreased [Not Recovered/Not Resolved]

NARRATIVE: CASE EVENT DATE: 2021
